FAERS Safety Report 7550776-X (Version None)
Quarter: 2011Q2

REPORT INFORMATION
  Report Type: 
  Country: None (occurrence: None)
  Receive Date: 20110616
  Receipt Date: 20110607
  Transmission Date: 20111010
  Serious: Yes (Hospitalization, Other)
  Sender: FDA-Public Use
  Company Number: CH-JNJFOC-20110510580

PATIENT
  Age: 67 Year
  Sex: Male

DRUGS (11)
  1. HALOPERIDOL [Suspect]
     Indication: ANAESTHETIC COMPLICATION NEUROLOGICAL
     Dosage: 1-1-1-2
     Route: 042
  2. METOCLOPRAMIDE [Interacting]
     Indication: PRODUCT USED FOR UNKNOWN INDICATION
     Route: 065
  3. RIFAMPICIN [Concomitant]
     Indication: PRODUCT USED FOR UNKNOWN INDICATION
     Dosage: 1-0-1-0
     Route: 048
  4. HALOPERIDOL [Suspect]
     Route: 042
     Dates: start: 20100720
  5. QUETIAPINE [Interacting]
     Indication: ANAESTHETIC COMPLICATION NEUROLOGICAL
     Route: 065
  6. PROPOFOL [Suspect]
     Indication: ANAESTHETIC COMPLICATION NEUROLOGICAL
     Route: 042
  7. FLUCONAZOLE [Suspect]
     Indication: PRODUCT USED FOR UNKNOWN INDICATION
     Route: 065
  8. LORAZEPAM [Suspect]
     Indication: ANAESTHETIC COMPLICATION NEUROLOGICAL
     Dosage: IN RESERVE
     Route: 065
  9. ATORVASTATIN [Suspect]
     Indication: PRODUCT USED FOR UNKNOWN INDICATION
     Route: 065
  10. AMIODARONE HCL [Suspect]
     Indication: PRODUCT USED FOR UNKNOWN INDICATION
     Route: 065
  11. IMIPENEM [Concomitant]
     Indication: PRODUCT USED FOR UNKNOWN INDICATION
     Route: 042

REACTIONS (5)
  - PULMONARY OEDEMA [None]
  - INCORRECT ROUTE OF DRUG ADMINISTRATION [None]
  - ATRIAL FIBRILLATION [None]
  - DRUG INTERACTION [None]
  - BLOOD CREATINE PHOSPHOKINASE INCREASED [None]
